FAERS Safety Report 21332362 (Version 1)
Quarter: 2022Q3

REPORT INFORMATION
  Report Type: Spontaneous
  Country: CN (occurrence: CN)
  Receive Date: 20220914
  Receipt Date: 20220914
  Transmission Date: 20221027
  Serious: Yes (Other)
  Sender: FDA-Public Use
  Company Number: None

PATIENT
  Age: 37 Year
  Sex: Female

DRUGS (6)
  1. CYCLOPHOSPHAMIDE [Suspect]
     Active Substance: CYCLOPHOSPHAMIDE
     Indication: Breast cancer female
     Dosage: 0.9 G, ONCE IN 20 DAYS (DILUTED WITH 0.9% SODIUM CHLORIDE INJECTION 100ML)
     Route: 041
     Dates: start: 20220611, end: 20220721
  2. CYCLOPHOSPHAMIDE [Suspect]
     Active Substance: CYCLOPHOSPHAMIDE
     Indication: Invasive breast carcinoma
  3. SODIUM CHLORIDE [Suspect]
     Active Substance: SODIUM CHLORIDE
     Indication: Medication dilution
     Dosage: 100 ML, ONCE IN 20 DAYS (DILUTED WITH CYCLOPHOSPHAMIDE FOR INJECTION 0.9 G)
     Route: 041
     Dates: start: 20220611, end: 20220721
  4. SODIUM CHLORIDE [Suspect]
     Active Substance: SODIUM CHLORIDE
     Dosage: 100 ML, ONCE IN 20 DAYS (DILUTED WITH EPIRUBICIN HYDROCHLORIDE FOR INJECTION 140 MG)
     Route: 041
     Dates: start: 20220611, end: 20220721
  5. EPIRUBICIN HYDROCHLORIDE [Suspect]
     Active Substance: EPIRUBICIN HYDROCHLORIDE
     Indication: Breast cancer female
     Dosage: 140 MG, ONCE IN 20 DAYS (DILUTED WITH 0.9% SODIUM CHLORIDE INJECTION 100ML)
     Route: 041
     Dates: start: 20220611, end: 20220721
  6. EPIRUBICIN HYDROCHLORIDE [Suspect]
     Active Substance: EPIRUBICIN HYDROCHLORIDE
     Indication: Invasive breast carcinoma

REACTIONS (1)
  - Hepatic function abnormal [Recovering/Resolving]

NARRATIVE: CASE EVENT DATE: 20220809
